FAERS Safety Report 4735252-1 (Version None)
Quarter: 2005Q3

REPORT INFORMATION
  Report Type: 
  Country: None (occurrence: None)
  Receive Date: 20050802
  Receipt Date: 20050728
  Transmission Date: 20060218
  Serious: Yes (Other)
  Sender: FDA-Public Use
  Company Number: 213879

PATIENT
  Age: 55 Year
  Sex: Female
  Weight: 136.1 kg

DRUGS (5)
  1. HERCEPTIN [Suspect]
     Dosage: 2 MG/KG,
  2. TAGAMET [Concomitant]
  3. DECADRON [Concomitant]
  4. BENADRYL [Concomitant]
  5. TYLENOL [Concomitant]

REACTIONS (10)
  - ALANINE AMINOTRANSFERASE INCREASED [None]
  - ASPARTATE AMINOTRANSFERASE INCREASED [None]
  - BLOOD ALKALINE PHOSPHATASE INCREASED [None]
  - BLOOD LACTATE DEHYDROGENASE INCREASED [None]
  - CHOLECYSTITIS [None]
  - DERMATITIS ALLERGIC [None]
  - DIABETES MELLITUS [None]
  - GAMMA-GLUTAMYLTRANSFERASE INCREASED [None]
  - HYPERGLYCAEMIA [None]
  - NEPHROLITHIASIS [None]
